FAERS Safety Report 24090136 (Version 1)
Quarter: 2024Q3

REPORT INFORMATION
  Report Type: Spontaneous
  Country: US (occurrence: US)
  Receive Date: 20240715
  Receipt Date: 20240715
  Transmission Date: 20241016
  Serious: Yes (Other)
  Sender: CHEPLAPHARM
  Company Number: US-AstraZeneca-2024A150680

PATIENT
  Age: 74 Year
  Sex: Male
  Weight: 108.9 kg

DRUGS (16)
  1. BUDESONIDE [Suspect]
     Active Substance: BUDESONIDE
     Dosage: 0.5MG/2ML; ROA: RESPIRATORY INHALATION
     Route: 055
  2. TEZSPIRE [Suspect]
     Active Substance: TEZEPELUMAB-EKKO
     Indication: Asthma
     Route: 058
  3. FASENRA [Suspect]
     Active Substance: BENRALIZUMAB
     Route: 058
  4. CRESTOR [Suspect]
     Active Substance: ROSUVASTATIN CALCIUM
     Indication: Hyperlipidaemia
     Dosage: DAILY DOSE: 20 MILLIGRAM
     Route: 048
  5. BREZTRI [Suspect]
     Active Substance: BUDESONIDE\FORMOTEROL\GLYCOPYRROLATE
     Dosage: ROA: RESPIRATORY INHALATION
     Route: 055
  6. DILTIAZEM [Concomitant]
     Active Substance: DILTIAZEM
  7. Guaifensine-codeine [Concomitant]
  8. CICLOPIROX [Concomitant]
     Active Substance: CICLOPIROX
  9. MONTELUKAST [Concomitant]
     Active Substance: MONTELUKAST SODIUM
  10. Acetoaminophen/codeine [Concomitant]
  11. FAMOTIDINE [Concomitant]
     Active Substance: FAMOTIDINE
  12. FUROSEMIDE [Concomitant]
     Active Substance: FUROSEMIDE
  13. TAMSULOSIN [Concomitant]
     Active Substance: TAMSULOSIN
  14. DONEPEZIL [Concomitant]
     Active Substance: DONEPEZIL\DONEPEZIL HYDROCHLORIDE
  15. GABAPENTIN [Concomitant]
     Active Substance: GABAPENTIN
  16. LEVOTHYROXINE [Concomitant]
     Active Substance: LEVOTHYROXINE\LEVOTHYROXINE SODIUM

REACTIONS (6)
  - Asthmatic crisis [Unknown]
  - Rhinitis [Unknown]
  - Resting tremor [Unknown]
  - Rhinorrhoea [Unknown]
  - Rhonchi [Unknown]
  - Headache [Unknown]

NARRATIVE: CASE EVENT DATE: 20220401
